FAERS Safety Report 22585521 (Version 3)
Quarter: 2024Q4

REPORT INFORMATION
  Report Type: Report from Study
  Country: US (occurrence: US)
  Receive Date: 20230610
  Receipt Date: 20241003
  Transmission Date: 20250114
  Serious: No
  Sender: NOVARTIS
  Company Number: US-002147023-NVSC2023US132636

PATIENT
  Sex: Female

DRUGS (1)
  1. KESIMPTA [Suspect]
     Active Substance: OFATUMUMAB
     Indication: Product used for unknown indication
     Dosage: 20 MG, UNKNOWN
     Route: 058

REACTIONS (3)
  - Asthenia [Unknown]
  - Perioral dermatitis [Unknown]
  - Device use error [Unknown]
